FAERS Safety Report 4280504-5 (Version None)
Quarter: 2004Q1

REPORT INFORMATION
  Report Type: 
  Country: None (occurrence: None)
  Receive Date: 20040127
  Receipt Date: 20040115
  Transmission Date: 20041129
  Serious: Yes (Other)
  Sender: FDA-Public Use
  Company Number: DE-JNJFOC-20040103749

PATIENT
  Age: 22 Year
  Sex: Male

DRUGS (2)
  1. RISPERDAL [Suspect]
     Indication: SCHIZOPHRENIA
     Dosage: ORAL
     Route: 048
     Dates: start: 20030601, end: 20030911
  2. FLUANXOL DEPOT (FLUPENTIXOL DECANOATE) [Concomitant]

REACTIONS (2)
  - DRUG INTERACTION [None]
  - DYSKINESIA [None]
